FAERS Safety Report 9125983 (Version 1)
Quarter: 2013Q1

REPORT INFORMATION
  Report Type: Spontaneous
  Country: US (occurrence: US)
  Receive Date: 20130117
  Receipt Date: 20130117
  Transmission Date: 20140127
  Serious: Yes (Hospitalization)
  Sender: FDA-Public Use
  Company Number: US-JNJFOC-20130105445

PATIENT
  Age: 79 None
  Sex: Female
  Weight: 56.7 kg

DRUGS (6)
  1. SANDOZ FENTANYL TRANSDERMAL SYSTEM [Suspect]
     Indication: NEUROPATHY PERIPHERAL
     Route: 062
     Dates: start: 201205, end: 201208
  2. SANDOZ FENTANYL TRANSDERMAL SYSTEM [Suspect]
     Indication: NEUROPATHY PERIPHERAL
     Route: 062
     Dates: start: 201208, end: 2012
  3. SANDOZ FENTANYL TRANSDERMAL SYSTEM [Suspect]
     Indication: NEUROPATHY PERIPHERAL
     Route: 062
     Dates: start: 2012
  4. SANDOZ FENTANYL TRANSDERMAL SYSTEM [Suspect]
     Indication: NEUROPATHY PERIPHERAL
     Route: 062
     Dates: start: 2010, end: 20120423
  5. COUMADIN [Concomitant]
     Indication: CARDIAC DISORDER
     Dosage: DAILY EXCEPT ON WEDNESDAY AND SATURDAY
     Route: 048
  6. COUMADIN [Concomitant]
     Indication: CARDIAC DISORDER
     Dosage: DAILY ON WEDNESDAY AND SATURDAY
     Route: 048

REACTIONS (8)
  - Convulsion [Recovered/Resolved]
  - Withdrawal syndrome [Recovered/Resolved]
  - Blood pressure decreased [Recovered/Resolved]
  - General physical health deterioration [Recovered/Resolved]
  - Drug ineffective [Unknown]
  - Application site irritation [Unknown]
  - Application site erythema [Unknown]
  - Application site pruritus [Unknown]
